FAERS Safety Report 22125117 (Version 5)
Quarter: 2023Q4

REPORT INFORMATION
  Report Type: Spontaneous
  Country: US (occurrence: US)
  Receive Date: 20230322
  Receipt Date: 20231223
  Transmission Date: 20240110
  Serious: No
  Sender: FDA-Public Use
  Company Number: US-SA-SAC20230320001271

PATIENT
  Age: 50 Year
  Sex: Female

DRUGS (11)
  1. DUPIXENT [Suspect]
     Active Substance: DUPILUMAB
     Indication: Dermatitis atopic
     Dosage: 300 MG, QOW
     Route: 058
     Dates: start: 20190925
  2. MAGNESIUM [Concomitant]
     Active Substance: MAGNESIUM
     Dosage: UNK
  3. VITAMIN D NOS [Concomitant]
     Active Substance: VITAMIN D NOS
     Dosage: UNK
  4. BIOTIN [Concomitant]
     Active Substance: BIOTIN
     Dosage: UNK
  5. FISH OIL [Concomitant]
     Active Substance: FISH OIL
     Dosage: UNK
  6. CALCIUM [Concomitant]
     Active Substance: CALCIUM
     Dosage: UNK
  7. IBUPROFEN [Concomitant]
     Active Substance: IBUPROFEN
     Dosage: UNK
  8. LEVOTHYROXINE [Concomitant]
     Active Substance: LEVOTHYROXINE
     Dosage: UNK
  9. DOXYCYCLINE [Concomitant]
     Active Substance: DOXYCYCLINE
     Dosage: UNK
  10. BUPROPION [Concomitant]
     Active Substance: BUPROPION
  11. TRIAMCINOLONE [Concomitant]
     Active Substance: TRIAMCINOLONE

REACTIONS (5)
  - Dermatitis atopic [Not Recovered/Not Resolved]
  - Rash [Not Recovered/Not Resolved]
  - Rash pruritic [Not Recovered/Not Resolved]
  - Eczema [Unknown]
  - Inappropriate schedule of product administration [Not Recovered/Not Resolved]

NARRATIVE: CASE EVENT DATE: 20230201
